FAERS Safety Report 11659375 (Version 1)
Quarter: 2015Q4

REPORT INFORMATION
  Report Type: Spontaneous
  Country: US (occurrence: None)
  Receive Date: 20151023
  Receipt Date: 20151023
  Transmission Date: 20160304
  Serious: Yes (Life-Threatening, Disabling)
  Sender: FDA-Public Use
  Company Number: None

PATIENT
  Age: 78 Year
  Sex: Male
  Weight: 74.84 kg

DRUGS (23)
  1. B COMPLEX LIQUID [Concomitant]
  2. LYCOPODIUM CLAVATUM 2X [Concomitant]
  3. TARAXACUM OFFICINALE 2X [Concomitant]
  4. NATRUM SULPHURICUM 6X [Concomitant]
  5. PHOSPHORUS 6X [Concomitant]
  6. BETA VULGARISM 2X [Concomitant]
  7. AUROBINDO PHARM. VALSARTAN-HCTZ 320MG - 25MG [Suspect]
     Active Substance: HYDROCHLOROTHIAZIDE\VALSARTAN
     Indication: HYPERTENSION
     Dosage: 1 PILL (320/25MG) ONCE DAILY TAKEN BY MOUTH
     Route: 048
     Dates: start: 20151010, end: 20151012
  8. CARDUUS MARINAS 2X [Concomitant]
  9. CHELIDONIUM MAJUS 2X [Concomitant]
  10. LIVER 3X [Concomitant]
  11. VITAMIN D3 [Concomitant]
     Active Substance: CHOLECALCIFEROL
  12. RAPHANUS SATIVUS 3X [Concomitant]
  13. GALLBLADDER 6X [Concomitant]
  14. LIVER 6X [Concomitant]
  15. BLOOD PRESSURE MONITOR [Concomitant]
  16. PURIFIED WATER [Concomitant]
     Active Substance: WATER
  17. UVA-URSI 2X [Concomitant]
  18. GALLBLADDER 3X [Concomitant]
  19. PICRORRHIZA KURROA 6X [Concomitant]
  20. ALCOHOL. [Concomitant]
     Active Substance: ALCOHOL
  21. LIVER STIM LIQUESCENCE [Concomitant]
  22. HTDRASTIS CANADENSIS 2X [Concomitant]
  23. PTELEA TRIFOLIATA 6X [Concomitant]

REACTIONS (5)
  - Dyspnoea [None]
  - Nausea [None]
  - Cough [None]
  - Pruritus [None]
  - Product substitution issue [None]

NARRATIVE: CASE EVENT DATE: 20151010
